FAERS Safety Report 21001676 (Version 1)
Quarter: 2022Q2

REPORT INFORMATION
  Report Type: Spontaneous
  Country: US (occurrence: US)
  Receive Date: 20220624
  Receipt Date: 20220624
  Transmission Date: 20220721
  Serious: No
  Sender: FDA-Public Use
  Company Number: US-BAUSCH-BL-2022-015417

PATIENT
  Age: 82 Year
  Sex: Female

DRUGS (1)
  1. DORZOLAMIDE [Suspect]
     Active Substance: DORZOLAMIDE
     Indication: Product used for unknown indication
     Route: 065

REACTIONS (3)
  - Hypopnoea [Unknown]
  - Fatigue [Unknown]
  - Dyspnoea [Unknown]
